FAERS Safety Report 13209284 (Version 1)
Quarter: 2017Q1

REPORT INFORMATION
  Report Type: Spontaneous
  Country: BE (occurrence: BE)
  Receive Date: 20170209
  Receipt Date: 20170209
  Transmission Date: 20170428
  Serious: Yes (Other)
  Sender: FDA-Public Use
  Company Number: PHHY2017BE008001

PATIENT
  Sex: Female

DRUGS (1)
  1. VALPROATE SODIUM. [Suspect]
     Active Substance: VALPROATE SODIUM
     Indication: EPILEPSY
     Dosage: 500 MG, TID
     Route: 065

REACTIONS (3)
  - Drug ineffective [Unknown]
  - Maternal exposure during pregnancy [Unknown]
  - Premature delivery [Unknown]
